FAERS Safety Report 5635648-X (Version None)
Quarter: 2008Q1

REPORT INFORMATION
  Report Type: 
  Country: None (occurrence: None)
  Receive Date: 20080220
  Receipt Date: 20080211
  Transmission Date: 20080703
  Serious: Yes (Other)
  Sender: FDA-Public Use
  Company Number: CHNY2008GR00657

PATIENT
  Age: 38 Year
  Sex: Female

DRUGS (2)
  1. OTRIVIN [Suspect]
     Indication: SINUSITIS
     Dosage: 2 DF, Q8H, NASAL
     Route: 045
     Dates: start: 20071207
  2. AMOXICILLIN [Suspect]
     Indication: SINUSITIS
     Dosage: 1 DF, TID, ORAL
     Route: 048
     Dates: start: 20071208, end: 20071218

REACTIONS (1)
  - RASH MACULAR [None]
